FAERS Safety Report 9497584 (Version 2)
Quarter: 2013Q4

REPORT INFORMATION
  Report Type: Spontaneous
  Country: US (occurrence: US)
  Receive Date: 20130904
  Receipt Date: 20131106
  Transmission Date: 20140711
  Serious: No
  Sender: FDA-Public Use
  Company Number: US-AMGEN-USASP2013056953

PATIENT
  Age: 52 Year
  Sex: Female
  Weight: 57.55 kg

DRUGS (2)
  1. ENBREL [Suspect]
     Indication: RHEUMATOID ARTHRITIS
     Dosage: 50 MG, QWK
     Route: 065
     Dates: start: 20130626, end: 20130808
  2. METHOTREXATE [Concomitant]
     Dosage: 10- 2.5 MG, QWK
     Dates: start: 2008

REACTIONS (12)
  - Injection site erythema [Recovered/Resolved]
  - Injection site reaction [Unknown]
  - Injection site mass [Recovered/Resolved]
  - Contusion [Not Recovered/Not Resolved]
  - Pruritus [Recovered/Resolved]
  - Arthropod bite [Recovered/Resolved]
  - Depression [Not Recovered/Not Resolved]
  - Crying [Not Recovered/Not Resolved]
  - Pyrexia [Recovered/Resolved]
  - Chills [Recovered/Resolved]
  - Injection site pain [Recovered/Resolved]
  - Injection site pruritus [Recovered/Resolved]
